FAERS Safety Report 17581859 (Version 1)
Quarter: 2020Q1

REPORT INFORMATION
  Report Type: Spontaneous
  Country: US (occurrence: US)
  Receive Date: 20200323
  Receipt Date: 20200323
  Transmission Date: 20200409
  Serious: Yes (Hospitalization)
  Sender: FDA-Public Use
  Company Number: None

PATIENT
  Age: 54 Year
  Sex: Female

DRUGS (2)
  1. VERZENIO [Suspect]
     Active Substance: ABEMACICLIB
     Indication: BREAST CANCER FEMALE
     Route: 048
     Dates: start: 20191217
  2. VERZENIO [Suspect]
     Active Substance: ABEMACICLIB
     Indication: HEPATIC CANCER METASTATIC
     Route: 048
     Dates: start: 20191217

REACTIONS (3)
  - Nausea [None]
  - Headache [None]
  - Breast cancer female [None]

NARRATIVE: CASE EVENT DATE: 20200106
